FAERS Safety Report 7860020-1 (Version None)
Quarter: 2011Q4

REPORT INFORMATION
  Report Type: 
  Country: None (occurrence: None)
  Receive Date: 20111025
  Receipt Date: 20111012
  Transmission Date: 20120403
  Serious: Yes (Other)
  Sender: FDA-Public Use
  Company Number: PHHY2011JP83281

PATIENT
  Age: 80 Year
  Sex: Male

DRUGS (1)
  1. VISUDYNE [Suspect]
     Indication: AGE-RELATED MACULAR DEGENERATION

REACTIONS (3)
  - DISEASE PROGRESSION [None]
  - MACULAR DEGENERATION [None]
  - ENDOPHTHALMITIS [None]
